FAERS Safety Report 7332601-5 (Version None)
Quarter: 2011Q1

REPORT INFORMATION
  Report Type: 
  Country: None (occurrence: None)
  Receive Date: 20110304
  Receipt Date: 20110228
  Transmission Date: 20110831
  Serious: Yes (Other)
  Sender: FDA-Public Use
  Company Number: US-B.I. PHARMACEUTICALS,INC./RIDGEFIELD-2011-BP-05532BP

PATIENT
  Sex: Female

DRUGS (1)
  1. CLONIDINE HCL [Suspect]
     Indication: BLOOD PRESSURE
     Dosage: 0.2 MG
     Route: 048
     Dates: start: 20090101, end: 20090101

REACTIONS (2)
  - ANEURYSM [None]
  - DRUG INEFFECTIVE [None]
